FAERS Safety Report 23950691 (Version 1)
Quarter: 2024Q2

REPORT INFORMATION
  Report Type: Report from Study
  Country: US (occurrence: US)
  Receive Date: 20240607
  Receipt Date: 20240607
  Transmission Date: 20240716
  Serious: No
  Sender: FDA-Public Use
  Company Number: US-SPRINGWORKS THERAPEUTICS-SW-001404

PATIENT
  Age: 54 Year
  Sex: Female

DRUGS (1)
  1. NIROGACESTAT [Suspect]
     Active Substance: NIROGACESTAT
     Indication: Product used for unknown indication
     Dosage: UNK
     Route: 048

REACTIONS (2)
  - Respiratory tract infection viral [Unknown]
  - Dry throat [Unknown]

NARRATIVE: CASE EVENT DATE: 20240307
